FAERS Safety Report 16047878 (Version 1)
Quarter: 2019Q1

REPORT INFORMATION
  Report Type: Spontaneous
  Country: GB (occurrence: GB)
  Receive Date: 20190307
  Receipt Date: 20190307
  Transmission Date: 20190418
  Serious: Yes (Other)
  Sender: FDA-Public Use
  Company Number: GB-TEVA-2019-GB-1019397

PATIENT
  Age: 32 Year
  Sex: Female
  Weight: 52.61 kg

DRUGS (5)
  1. NORIDAY [Concomitant]
     Active Substance: MESTRANOL\NORETHINDRONE
  2. TOPIRAMATE. [Suspect]
     Active Substance: TOPIRAMATE
     Indication: MIGRAINE
     Dosage: 100 MILLIGRAM DAILY;
     Route: 048
     Dates: start: 20180120
  3. CETIRIZINE DIHYDROCHLORIDE [Concomitant]
     Active Substance: CETIRIZINE HYDROCHLORIDE
  4. RANITIDINE. [Concomitant]
     Active Substance: RANITIDINE
  5. ZOLMITRIPTAN. [Concomitant]
     Active Substance: ZOLMITRIPTAN

REACTIONS (1)
  - Abnormal loss of weight [Recovered/Resolved]
